FAERS Safety Report 15010735 (Version 1)
Quarter: 2018Q2

REPORT INFORMATION
  Report Type: Spontaneous
  Country: US (occurrence: US)
  Receive Date: 20180522
  Receipt Date: 20180522
  Transmission Date: 20180711
  Serious: Yes (Hospitalization, Disabling)
  Sender: FDA-Public Use
  Company Number: None

PATIENT
  Age: 86 Year
  Sex: Female
  Weight: 70.31 kg

DRUGS (13)
  1. RESUVESTATIN [Concomitant]
  2. METROPOLOL [Concomitant]
     Active Substance: METOPROLOL
  3. VITAMIN D [Concomitant]
     Active Substance: CHOLECALCIFEROL
  4. RAMIPRIL. [Concomitant]
     Active Substance: RAMIPRIL
  5. PROBIOTICS [Concomitant]
     Active Substance: PROBIOTICS NOS
  6. BRILINTA [Suspect]
     Active Substance: TICAGRELOR
  7. COQ10 [Concomitant]
     Active Substance: UBIDECARENONE
  8. EOTRIN [Concomitant]
  9. VITAMIN B [Concomitant]
     Active Substance: VITAMIN B
  10. LEUTEIN [Concomitant]
  11. VITAMIN C [Concomitant]
     Active Substance: ASCORBIC ACID
  12. CALCIUM [Concomitant]
     Active Substance: CALCIUM
  13. OMEGA 3 [Concomitant]
     Active Substance: OMEGA-3 FATTY ACIDS

REACTIONS (12)
  - Paraesthesia [None]
  - Dehydration [None]
  - Gait inability [None]
  - Dysstasia [None]
  - Syncope [None]
  - Asthenia [None]
  - Blood pressure fluctuation [None]
  - Dizziness [None]
  - Headache [None]
  - Rash [None]
  - Weight decreased [None]
  - Chest discomfort [None]

NARRATIVE: CASE EVENT DATE: 20180430
